FAERS Safety Report 9925136 (Version 2)
Quarter: 2014Q2

REPORT INFORMATION
  Report Type: Spontaneous
  Country: NL (occurrence: NL)
  Receive Date: 20140226
  Receipt Date: 20140416
  Transmission Date: 20141212
  Serious: Yes (Other)
  Sender: FDA-Public Use
  Company Number: NL-IPSEN BIOPHARMACEUTICALS, INC.-2014-0917

PATIENT
  Sex: Female

DRUGS (1)
  1. SOMATULINE AUTOSOLUTION 120MG [Suspect]
     Indication: ACROMEGALY
     Dosage: 120 MG
     Route: 058
     Dates: start: 20110915

REACTIONS (1)
  - Lung operation [Unknown]
